FAERS Safety Report 25460473 (Version 1)
Quarter: 2025Q2

REPORT INFORMATION
  Report Type: Spontaneous
  Country: PL (occurrence: PL)
  Receive Date: 20250620
  Receipt Date: 20250620
  Transmission Date: 20250717
  Serious: Yes (Other)
  Sender: SANOFI AVENTIS
  Company Number: PL-SA-2025SA159794

PATIENT
  Age: 56 Year
  Sex: Female

DRUGS (5)
  1. ZOLPIDEM TARTRATE [Interacting]
     Active Substance: ZOLPIDEM TARTRATE
     Indication: Sleep disorder
  2. ATORVASTATIN [Interacting]
     Active Substance: ATORVASTATIN
     Dosage: 80 MG, QD
  3. ASPIRIN [Concomitant]
     Active Substance: ASPIRIN
  4. RAMIPRIL [Concomitant]
     Active Substance: RAMIPRIL
  5. TORSEMIDE [Concomitant]
     Active Substance: TORSEMIDE

REACTIONS (3)
  - Drug level increased [Unknown]
  - Drug interaction [Unknown]
  - Drug-disease interaction [Unknown]
